FAERS Safety Report 24705434 (Version 1)
Quarter: 2024Q4

REPORT INFORMATION
  Report Type: Spontaneous
  Country: US (occurrence: US)
  Receive Date: 20241206
  Receipt Date: 20241206
  Transmission Date: 20250114
  Serious: Yes (Other)
  Sender: AUROBINDO
  Company Number: US-MLMSERVICE-20241115-PI259321-00271-2

PATIENT
  Sex: Female

DRUGS (4)
  1. PREDNISONE [Suspect]
     Active Substance: PREDNISONE
     Indication: Glomerulonephritis membranoproliferative
     Dosage: 20 MILLIGRAM, ONCE A DAY
     Route: 065
  2. PREDNISONE [Suspect]
     Active Substance: PREDNISONE
     Dosage: 50 MILLIGRAM, ONCE A DAY (INCREASING TO 50 MG/DAY)
     Route: 065
  3. PREDNISONE [Suspect]
     Active Substance: PREDNISONE
     Dosage: 5 MILLIGRAM
     Route: 065
  4. CORTICOTROPIN [Concomitant]
     Active Substance: CORTICOTROPIN
     Indication: Glomerulonephritis membranoproliferative
     Dosage: UNK
     Route: 065

REACTIONS (3)
  - Depression [Unknown]
  - Suicidal ideation [Unknown]
  - Rebound effect [Unknown]
